FAERS Safety Report 15628233 (Version 1)
Quarter: 2018Q4

REPORT INFORMATION
  Report Type: Spontaneous
  Country: ES (occurrence: ES)
  Receive Date: 20181116
  Receipt Date: 20181116
  Transmission Date: 20190205
  Serious: Yes (Other)
  Sender: FDA-Public Use
  Company Number: ES-GILEAD-2018-0374463

PATIENT
  Age: 75 Year
  Sex: Male

DRUGS (6)
  1. RANOLAZINE. [Suspect]
     Active Substance: RANOLAZINE
     Dosage: 375 MG,QD ON ALTERNATE DAYS
     Route: 048
  2. ACETYLSALICYLIC ACID [Concomitant]
     Active Substance: ASPIRIN
     Dates: start: 2004
  3. ROSUVASTATIN. [Concomitant]
     Active Substance: ROSUVASTATIN
     Dates: start: 2004
  4. RANOLAZINE. [Suspect]
     Active Substance: RANOLAZINE
     Dosage: 375 MG, BID ON ALTERNATE DAYS
     Route: 048
  5. ATENOLOL. [Concomitant]
     Active Substance: ATENOLOL
     Dates: start: 2004
  6. RANOLAZINE. [Suspect]
     Active Substance: RANOLAZINE
     Indication: ANGINA PECTORIS
     Route: 048
     Dates: start: 201807, end: 20181022

REACTIONS (2)
  - Constipation [Recovering/Resolving]
  - Faecaloma [Recovering/Resolving]

NARRATIVE: CASE EVENT DATE: 201807
